FAERS Safety Report 8235048-2 (Version None)
Quarter: 2012Q1

REPORT INFORMATION
  Report Type: 
  Country: None (occurrence: None)
  Receive Date: 20120326
  Receipt Date: 20120321
  Transmission Date: 20120608
  Serious: Yes (Hospitalization)
  Sender: FDA-Public Use
  Company Number: US-GLAXOSMITHKLINE-A0970870A

PATIENT
  Sex: Male

DRUGS (1)
  1. PAXIL [Suspect]
     Indication: OBSESSIVE-COMPULSIVE DISORDER
     Dosage: 20MG SEE DOSAGE TEXT
     Route: 048
     Dates: start: 20040602, end: 20090101

REACTIONS (8)
  - INTENTIONAL OVERDOSE [None]
  - ALCOHOLISM [None]
  - LOSS OF CONSCIOUSNESS [None]
  - THERAPEUTIC RESPONSE DECREASED [None]
  - SUICIDE ATTEMPT [None]
  - DEPRESSION [None]
  - FEELING OF DESPAIR [None]
  - LETHARGY [None]
